FAERS Safety Report 4494370-6 (Version None)
Quarter: 2004Q4

REPORT INFORMATION
  Report Type: 
  Country: None (occurrence: None)
  Receive Date: 20041104
  Receipt Date: 20041104
  Transmission Date: 20050328
  Serious: Yes (Hospitalization)
  Sender: FDA-Public Use
  Company Number: None

PATIENT
  Age: 52 Year
  Sex: Female
  Weight: 71.6683 kg

DRUGS (1)
  1. VIOXX [Suspect]
     Indication: ARTHRALGIA
     Dosage: 1-25 MG TAB DAILY BY MOUTH
     Dates: start: 19990101, end: 20040101

REACTIONS (2)
  - HYPOAESTHESIA [None]
  - PARAESTHESIA [None]
